FAERS Safety Report 23179081 (Version 2)
Quarter: 2023Q4

REPORT INFORMATION
  Report Type: Report from Study
  Country: US (occurrence: US)
  Receive Date: 20231113
  Receipt Date: 20231220
  Transmission Date: 20240110
  Serious: No
  Sender: FDA-Public Use
  Company Number: US-ALXN-202311USA000449US

PATIENT
  Sex: Female

DRUGS (1)
  1. STRENSIQ [Suspect]
     Active Substance: ASFOTASE ALFA
     Indication: Product used for unknown indication
     Dosage: UNK
     Route: 065

REACTIONS (6)
  - Pain [Unknown]
  - Muscle fatigue [Unknown]
  - Headache [Unknown]
  - Gingival recession [Unknown]
  - Asthenia [Unknown]
  - Laboratory test abnormal [Unknown]
